FAERS Safety Report 9231452 (Version 2)
Quarter: 2013Q3

REPORT INFORMATION
  Report Type: Spontaneous
  Country: CA (occurrence: CA)
  Receive Date: 20130415
  Receipt Date: 20130815
  Transmission Date: 20140515
  Serious: Yes (Hospitalization)
  Sender: FDA-Public Use
  Company Number: CA-GLAXOSMITHKLINE-A0880358A

PATIENT
  Age: 54 Year
  Sex: Female

DRUGS (2)
  1. TYKERB [Suspect]
     Indication: BREAST CANCER METASTATIC
     Dosage: 1250MG PER DAY
     Route: 048
     Dates: start: 20100319
  2. XELODA [Suspect]
     Indication: PRODUCT USED FOR UNKNOWN INDICATION
     Dosage: 150MG AT NIGHT
     Route: 065

REACTIONS (8)
  - Convulsion [Unknown]
  - Haemorrhage [Unknown]
  - Pharyngitis streptococcal [Unknown]
  - Asthenia [Unknown]
  - Pharyngitis [Not Recovered/Not Resolved]
  - Blister [Unknown]
  - Burning sensation [Unknown]
  - Skin discolouration [Unknown]
